FAERS Safety Report 18964541 (Version 1)
Quarter: 2021Q1

REPORT INFORMATION
  Report Type: Report from Study
  Country: US (occurrence: US)
  Receive Date: 20210303
  Receipt Date: 20210303
  Transmission Date: 20210420
  Serious: Yes (Death, Other)
  Sender: FDA-Public Use
  Company Number: US-AUROBINDO-AUR-APL-2019-051396

PATIENT

DRUGS (9)
  1. RITUXIMAB. [Suspect]
     Active Substance: RITUXIMAB
     Indication: STEM CELL TRANSPLANT
  2. RITUXIMAB. [Suspect]
     Active Substance: RITUXIMAB
     Indication: PLASMA CELL MYELOMA
     Dosage: 250 MG/M2, SINGLE, ON DAY? 22
     Route: 042
  3. SARGRAMOSTIM [Concomitant]
     Active Substance: SARGRAMOSTIM
     Indication: PROPHYLAXIS
     Dosage: (GM?CSF, DAY 0)
     Route: 065
  4. ZEVALIN [Suspect]
     Active Substance: IBRITUMOMAB TIUXETAN
     Indication: STEM CELL TRANSPLANT
     Dosage: UNK
     Route: 065
  5. ZEVALIN [Suspect]
     Active Substance: IBRITUMOMAB TIUXETAN
     Indication: NON-HODGKIN^S LYMPHOMA
     Dosage: 16 GY, SINGLE, ON DAY? 14
     Route: 042
  6. MELPHALAN. [Suspect]
     Active Substance: MELPHALAN
     Indication: PLASMA CELL MYELOMA
     Dosage: 100 MILLIGRAM/SQ. METER, ONCE A DAY
     Route: 065
  7. RITUXIMAB. [Suspect]
     Active Substance: RITUXIMAB
     Indication: SURGICAL PRECONDITIONING
     Dosage: 250 MG/M2, SINGLE, ON DAY? 14
     Route: 042
  8. ZEVALIN [Suspect]
     Active Substance: IBRITUMOMAB TIUXETAN
     Indication: PLASMA CELL MYELOMA
     Dosage: UNK, SINGLE, ON DAY? 22
     Route: 042
  9. MELPHALAN. [Suspect]
     Active Substance: MELPHALAN
     Indication: STEM CELL TRANSPLANT

REACTIONS (3)
  - Hepatic failure [Fatal]
  - Delayed engraftment [Unknown]
  - Cytomegalovirus viraemia [Unknown]
